FAERS Safety Report 10408574 (Version 1)
Quarter: 2014Q3

REPORT INFORMATION
  Report Type: Spontaneous
  Country: JP (occurrence: JP)
  Receive Date: 20140826
  Receipt Date: 20140826
  Transmission Date: 20150326
  Serious: Yes (Death, Other)
  Sender: FDA-Public Use
  Company Number: PHHY2014JP104733

PATIENT
  Age: 66 Year
  Sex: Female

DRUGS (3)
  1. CICLOSPORIN [Suspect]
     Active Substance: CYCLOSPORINE
     Indication: PROPHYLAXIS AGAINST GRAFT VERSUS HOST DISEASE
  2. FLUDARABINE [Suspect]
     Active Substance: FLUDARABINE PHOSPHATE
     Dosage: 30 MG/M2, PER DAY
  3. BUSULPHAN [Suspect]
     Active Substance: BUSULFAN
     Dosage: 0.8 MG/KG, Q12H
     Route: 042

REACTIONS (3)
  - Non-Hodgkin^s lymphoma recurrent [Fatal]
  - Non-Hodgkin^s lymphoma [Fatal]
  - Graft versus host disease in gastrointestinal tract [Unknown]
